FAERS Safety Report 5798841-1 (Version None)
Quarter: 2008Q2

REPORT INFORMATION
  Report Type: 
  Country: None (occurrence: None)
  Receive Date: 20080630
  Receipt Date: 20080616
  Transmission Date: 20081010
  Serious: Yes (Death, Other)
  Sender: FDA-Public Use
  Company Number: 100#08#2008-03225

PATIENT
  Age: 68 Year
  Sex: Female

DRUGS (7)
  1. FLUCONAZOLE [Suspect]
     Indication: CEREBRAL DISORDER
     Dosage: 400 MG, ORAL, 600 MG, ORAL
     Route: 048
  2. FLUCONAZOLE [Suspect]
     Indication: CRYPTOCOCCOSIS
     Dosage: 400 MG, ORAL, 600 MG, ORAL
     Route: 048
  3. FLUCONAZOLE [Suspect]
     Indication: CEREBRAL DISORDER
     Dosage: 400 MG, ORAL, 600 MG, ORAL
     Route: 048
  4. FLUCONAZOLE [Suspect]
     Indication: CRYPTOCOCCOSIS
     Dosage: 400 MG, ORAL, 600 MG, ORAL
     Route: 048
  5. METOPROLOL TARTRATE [Concomitant]
  6. ACETYSALICYLIC ACID (ACETYSALICYLIC ACID) [Concomitant]
  7. FLUCYTOSINE (FLUCYTOSINE) [Concomitant]

REACTIONS (4)
  - CARDIO-RESPIRATORY ARREST [None]
  - GRAND MAL CONVULSION [None]
  - TORSADE DE POINTES [None]
  - VENTRICULAR FIBRILLATION [None]
